FAERS Safety Report 24696208 (Version 2)
Quarter: 2024Q4

REPORT INFORMATION
  Report Type: Spontaneous
  Country: US (occurrence: US)
  Receive Date: 20241204
  Receipt Date: 20241212
  Transmission Date: 20250114
  Serious: No
  Sender: IPSEN BIOPHARMACEUTICALS, INC.
  Company Number: US-IPSEN Group, Research and Development-2024-24118

PATIENT
  Sex: Female

DRUGS (8)
  1. IQIRVO [Suspect]
     Active Substance: ELAFIBRANOR
     Indication: Primary biliary cholangitis
     Route: 048
  2. FOLIC ACID [Concomitant]
     Active Substance: FOLIC ACID
  3. OCALIVA [Concomitant]
     Active Substance: OBETICHOLIC ACID
  4. LISINOPRIL [Concomitant]
     Active Substance: LISINOPRIL
  5. VITAMIN D3 [Concomitant]
     Active Substance: CHOLECALCIFEROL
  6. URSODIOL [Concomitant]
     Active Substance: URSODIOL
  7. AMOXICILLIN/CLAVULANATE P [Concomitant]
  8. VITAMIN B12 [Concomitant]
     Active Substance: CYANOCOBALAMIN

REACTIONS (7)
  - Diarrhoea [Unknown]
  - Constipation [Unknown]
  - Nasopharyngitis [Unknown]
  - Influenza [Unknown]
  - Abdominal pain upper [Unknown]
  - Skin wrinkling [Unknown]
  - Product dose omission issue [Unknown]
